FAERS Safety Report 14103995 (Version 1)
Quarter: 2017Q4

REPORT INFORMATION
  Report Type: Spontaneous
  Country: US (occurrence: US)
  Receive Date: 20171018
  Receipt Date: 20171018
  Transmission Date: 20180321
  Serious: Yes (Other)
  Sender: FDA-Public Use
  Company Number: PHEH2017US033149

PATIENT
  Sex: Female

DRUGS (1)
  1. GILENYA [Suspect]
     Active Substance: FINGOLIMOD HYDROCHLORIDE
     Indication: PRODUCT USED FOR UNKNOWN INDICATION
     Dosage: UNK
     Route: 065
     Dates: start: 201410, end: 201701

REACTIONS (7)
  - Skin cancer [Unknown]
  - Infection [Unknown]
  - Haemorrhage [Unknown]
  - Depression [Unknown]
  - Visual impairment [Unknown]
  - Eye pain [Unknown]
  - Lethargy [Unknown]
